FAERS Safety Report 23347565 (Version 1)
Quarter: 2023Q4

REPORT INFORMATION
  Report Type: Spontaneous
  Country: DZ (occurrence: DZ)
  Receive Date: 20231228
  Receipt Date: 20231228
  Transmission Date: 20240110
  Serious: Yes (Death)
  Sender: FDA-Public Use
  Company Number: DZ-AMGEN-DZASP2023230550

PATIENT
  Age: 20 Year
  Sex: Male

DRUGS (1)
  1. BLINCYTO [Suspect]
     Active Substance: BLINATUMOMAB
     Indication: Acute lymphocytic leukaemia
     Dosage: 28 MICROGRAM, QD
     Route: 065
     Dates: start: 20231115, end: 20231224

REACTIONS (2)
  - Hypoxia [Fatal]
  - Haemorrhage [Fatal]
